FAERS Safety Report 16653506 (Version 2)
Quarter: 2019Q4

REPORT INFORMATION
  Report Type: Spontaneous
  Country: BR (occurrence: BR)
  Receive Date: 20190731
  Receipt Date: 20191030
  Transmission Date: 20200122
  Serious: Yes (Hospitalization, Other)
  Sender: FDA-Public Use
  Company Number: PHHY2019BR176743

PATIENT
  Sex: Female

DRUGS (3)
  1. ACLASTA [Suspect]
     Active Substance: ZOLEDRONIC ACID
     Indication: PRODUCT USED FOR UNKNOWN INDICATION
     Dosage: UNK
     Route: 065
     Dates: start: 201804, end: 201806
  2. PREDNISONE. [Suspect]
     Active Substance: PREDNISONE
     Indication: SYSTEMIC LUPUS ERYTHEMATOSUS
     Dosage: UNK
     Route: 065
  3. MIACALCIC [Suspect]
     Active Substance: CALCITONIN SALMON
     Indication: PRODUCT USED FOR UNKNOWN INDICATION
     Dosage: UNK
     Route: 065
     Dates: start: 201804, end: 201806

REACTIONS (6)
  - Osteoporosis [Unknown]
  - Spinal fracture [Unknown]
  - Pain [Unknown]
  - Inguinal hernia [Unknown]
  - Back pain [Unknown]
  - Fall [Unknown]
